FAERS Safety Report 10227534 (Version 1)
Quarter: 2014Q2

REPORT INFORMATION
  Report Type: Report from Study
  Country: US (occurrence: US)
  Receive Date: 20140610
  Receipt Date: 20140610
  Transmission Date: 20141212
  Serious: Yes (Death)
  Sender: FDA-Public Use
  Company Number: PHEH2014US011566

PATIENT
  Age: 75 Year
  Sex: Male

DRUGS (8)
  1. TASIGNA [Suspect]
     Indication: CHRONIC MYELOID LEUKAEMIA
     Dosage: 300 MG, BID
     Route: 048
     Dates: start: 20130822
  2. LEVEMIR [Concomitant]
  3. LEXAPRO [Concomitant]
     Dosage: 5 MG, UNK
  4. METFORMIN HCL [Concomitant]
     Dosage: 500 MG, UNK
  5. METOPROLOL SUCCINATE [Concomitant]
     Dosage: 25 MG, UNK
  6. NOVOLOG MIX [Concomitant]
  7. PRILOSEC [Concomitant]
     Dosage: 20 MG, UNK
  8. TRAZODONE HCL [Suspect]
     Dosage: 50 MG, UNK

REACTIONS (1)
  - Death [Fatal]
